FAERS Safety Report 24379065 (Version 3)
Quarter: 2024Q4

REPORT INFORMATION
  Report Type: Spontaneous
  Country: US (occurrence: US)
  Receive Date: 20240930
  Receipt Date: 20241213
  Transmission Date: 20250115
  Serious: Yes (Other)
  Sender: PFIZER
  Company Number: US-PFIZER INC-202400261805

PATIENT
  Age: 67 Year
  Sex: Female
  Weight: 58.06 kg

DRUGS (3)
  1. ESTRING [Suspect]
     Active Substance: ESTRADIOL
     Dosage: UNK
     Dates: start: 2018
  2. ESTRING [Suspect]
     Active Substance: ESTRADIOL
     Dosage: FOR ABOUT 3 WEEKS
     Dates: start: 202407, end: 202408
  3. ESTRING [Suspect]
     Active Substance: ESTRADIOL
     Dosage: THE NEW ONE IS IN ME AND HAS BEEN FOR ABOUT A MONTH
     Dates: start: 2024

REACTIONS (4)
  - Drug ineffective [Unknown]
  - Bacterial vaginosis [Unknown]
  - Burning sensation [Not Recovered/Not Resolved]
  - Vulvovaginal dryness [Unknown]

NARRATIVE: CASE EVENT DATE: 20240101
